FAERS Safety Report 21599788 (Version 1)
Quarter: 2022Q4

REPORT INFORMATION
  Report Type: Spontaneous
  Country: US (occurrence: US)
  Receive Date: 20221115
  Receipt Date: 20221115
  Transmission Date: 20230113
  Serious: Yes (Other)
  Sender: FDA-Public Use
  Company Number: US-CELLTRION INC.-2022US019030

PATIENT

DRUGS (2)
  1. TRUXIMA [Suspect]
     Active Substance: RITUXIMAB-ABBS
     Indication: Rheumatoid arthritis
     Dosage: 1 GRAM EVERY 2 WEEKS
     Route: 042
     Dates: start: 20210623
  2. TRUXIMA [Suspect]
     Active Substance: RITUXIMAB-ABBS
     Dosage: 1 GRAM EVERY 2 WEEKS
     Route: 042
     Dates: start: 20210707

REACTIONS (3)
  - Rheumatoid arthritis [Unknown]
  - Liver disorder [Unknown]
  - Renal disorder [Unknown]
